FAERS Safety Report 7470125-5 (Version None)
Quarter: 2011Q2

REPORT INFORMATION
  Report Type: 
  Country: None (occurrence: None)
  Receive Date: 20110510
  Receipt Date: 20110502
  Transmission Date: 20111010
  Serious: Yes (Death, Life-Threatening)
  Sender: FDA-Public Use
  Company Number: A0917173A

PATIENT
  Age: 56 Year
  Sex: Male

DRUGS (8)
  1. COUMADIN [Concomitant]
     Indication: PROTEIN C DEFICIENCY
     Route: 065
     Dates: start: 20000101
  2. LIPITOR [Concomitant]
  3. SYNTHROID [Concomitant]
  4. CHANTIX [Concomitant]
  5. LASIX [Concomitant]
  6. COREG [Suspect]
     Dosage: 6.25MG TWICE PER DAY
     Route: 048
     Dates: end: 20110201
  7. NORVASC [Concomitant]
  8. LISINOPRIL [Concomitant]

REACTIONS (6)
  - CEREBRAL ATROPHY [None]
  - LACUNAR INFARCTION [None]
  - INFARCTION [None]
  - INTRACRANIAL ANEURYSM [None]
  - CEREBROVASCULAR ACCIDENT [None]
  - ARTERIOSCLEROSIS [None]
